FAERS Safety Report 9098838 (Version 1)
Quarter: 2013Q1

REPORT INFORMATION
  Report Type: Spontaneous
  Country: US (occurrence: US)
  Receive Date: 20130213
  Receipt Date: 20130213
  Transmission Date: 20140127
  Serious: No
  Sender: FDA-Public Use
  Company Number: US-MYLANLABS-2012S1022584

PATIENT
  Age: 65 Year
  Sex: Female

DRUGS (7)
  1. ALPRAZOLAM [Suspect]
     Indication: AGORAPHOBIA
     Route: 048
     Dates: start: 20121027, end: 20121027
  2. TOPAMAX [Concomitant]
  3. ESTRADIOL TRANSDERMAL SYSTEM [Concomitant]
  4. HYDROCHLOROTHIAZIDE + TRIAMTERENE [Concomitant]
  5. CELEXA [Concomitant]
  6. ADDERALL [Concomitant]
  7. SEROQUEL [Concomitant]

REACTIONS (3)
  - Dyspnoea [Recovered/Resolved]
  - Rash [Recovering/Resolving]
  - Oral mucosal blistering [Recovering/Resolving]
